FAERS Safety Report 24302836 (Version 1)
Quarter: 2024Q3

REPORT INFORMATION
  Report Type: Spontaneous
  Country: US (occurrence: US)
  Receive Date: 20240910
  Receipt Date: 20240910
  Transmission Date: 20241016
  Serious: No
  Sender: NIPPON SHINYAKU
  Company Number: US-NIPPON SHINYAKU-NIP-2024-000042

PATIENT
  Age: 26 Year
  Sex: Male
  Weight: 95.6 kg

DRUGS (10)
  1. VILTEPSO [Suspect]
     Active Substance: VILTOLARSEN
     Indication: Duchenne muscular dystrophy
     Dosage: 7648 MILLIGRAM, QWK
     Route: 042
  2. VILTEPSO [Suspect]
     Active Substance: VILTOLARSEN
     Dosage: 7648 MILLIGRAM, QWK
     Route: 042
     Dates: start: 20240701, end: 20240701
  3. VILTEPSO [Suspect]
     Active Substance: VILTOLARSEN
     Dosage: 7648 MILLIGRAM, QWK
     Route: 042
     Dates: start: 20240708, end: 20240708
  4. VILTEPSO [Suspect]
     Active Substance: VILTOLARSEN
     Dosage: 7648 MILLIGRAM, QWK
     Route: 042
     Dates: start: 20240715, end: 20240715
  5. VILTEPSO [Suspect]
     Active Substance: VILTOLARSEN
     Dosage: 7648 MILLIGRAM, QWK
     Route: 042
     Dates: start: 20240722, end: 20240722
  6. VILTEPSO [Suspect]
     Active Substance: VILTOLARSEN
     Dosage: 7648 MILLIGRAM, QWK
     Route: 042
     Dates: start: 20240813, end: 20240813
  7. PREDNISONE [Concomitant]
     Active Substance: PREDNISONE
     Indication: Product used for unknown indication
     Dosage: 20 MILLIGRAM, QD
     Route: 048
  8. EPLERENONE [Concomitant]
     Active Substance: EPLERENONE
     Indication: Product used for unknown indication
     Dosage: 25 MG, QD
     Route: 065
  9. METOPROLOL [Concomitant]
     Active Substance: METOPROLOL
     Indication: Product used for unknown indication
     Dosage: 50 MG, QD
     Route: 048
  10. LOSARTAN [Concomitant]
     Active Substance: LOSARTAN\LOSARTAN POTASSIUM
     Indication: Product used for unknown indication
     Dosage: 50 MG, QD
     Route: 048

REACTIONS (1)
  - Urine protein/creatinine ratio abnormal [Unknown]

NARRATIVE: CASE EVENT DATE: 20240701
